FAERS Safety Report 6532126-0 (Version None)
Quarter: 2010Q1

REPORT INFORMATION
  Report Type: 
  Country: None (occurrence: None)
  Receive Date: 20100107
  Receipt Date: 20100107
  Transmission Date: 20100710
  Serious: Yes (Hospitalization)
  Sender: FDA-Public Use
  Company Number: None

PATIENT
  Age: 61 Year
  Sex: Male

DRUGS (1)
  1. TRAMADOL [Suspect]
     Dosage: 50 MG QID PO
     Route: 048
     Dates: start: 20090418, end: 20090418

REACTIONS (1)
  - GRAND MAL CONVULSION [None]
